APPROVED DRUG PRODUCT: AMINOSYN 7% W/ ELECTROLYTES
Active Ingredient: AMINO ACIDS; MAGNESIUM CHLORIDE; POTASSIUM PHOSPHATE, DIBASIC; SODIUM CHLORIDE
Strength: 7%;102MG/100ML;522MG/100ML;410MG/100ML
Dosage Form/Route: INJECTABLE;INJECTION
Application: N017789 | Product #002
Applicant: ICU MEDICAL INC
Approved: Approved Prior to Jan 1, 1982 | RLD: No | RS: No | Type: DISCN